FAERS Safety Report 22350069 (Version 2)
Quarter: 2023Q2

REPORT INFORMATION
  Report Type: Spontaneous
  Country: US (occurrence: US)
  Receive Date: 20230522
  Receipt Date: 20230609
  Transmission Date: 20230722
  Serious: No
  Sender: FDA-Public Use
  Company Number: US-SA-SAC20230518000078

PATIENT
  Age: 24 Year
  Sex: Female

DRUGS (1)
  1. DUPIXENT [Suspect]
     Active Substance: DUPILUMAB
     Indication: Dermatitis atopic
     Dosage: 300MG, OTHER
     Route: 058

REACTIONS (5)
  - Ocular hyperaemia [Unknown]
  - Dermatitis atopic [Unknown]
  - Rash [Unknown]
  - Eye swelling [Unknown]
  - Eye pruritus [Unknown]
